FAERS Safety Report 6079695-5 (Version None)
Quarter: 2009Q1

REPORT INFORMATION
  Report Type: 
  Country: None (occurrence: None)
  Receive Date: 20090217
  Receipt Date: 20090211
  Transmission Date: 20090719
  Serious: Yes (Life-Threatening, Hospitalization)
  Sender: FDA-Public Use
  Company Number: AU-BRISTOL-MYERS SQUIBB COMPANY-14504583

PATIENT
  Age: 71 Year
  Sex: Male

DRUGS (10)
  1. KARVEZIDE TABS 300MG/12.5MG [Suspect]
     Indication: ESSENTIAL HYPERTENSION
     Dosage: 1DF-300/12.5MG
     Route: 048
     Dates: end: 20070130
  2. CIPRAMIL [Suspect]
     Indication: DEPRESSION
     Dosage: FORMULATION -TABS
     Route: 048
     Dates: end: 20070130
  3. PHENYTOIN SODIUM [Suspect]
     Indication: CONVULSION
     Dosage: 1DF- UNITS NOT SPECIFIED
     Dates: start: 20070129, end: 20070129
  4. SOTAHEXAL [Suspect]
     Indication: ARRHYTHMIA
     Dosage: FORMULATION-TABS
     Route: 048
     Dates: end: 20070130
  5. ASPIRIN AND DIPYRIDAMOLE [Concomitant]
  6. BRICANYL [Concomitant]
  7. LIPITOR [Concomitant]
  8. NEXIUM [Concomitant]
  9. PULMICORT-100 [Concomitant]
  10. ROCEPHIN [Concomitant]

REACTIONS (2)
  - TORSADE DE POINTES [None]
  - VENTRICULAR TACHYCARDIA [None]
